FAERS Safety Report 13503712 (Version 1)
Quarter: 2017Q2

REPORT INFORMATION
  Report Type: Spontaneous
  Country: FR (occurrence: FR)
  Receive Date: 20170502
  Receipt Date: 20170502
  Transmission Date: 20170830
  Serious: Yes (Hospitalization, Other)
  Sender: FDA-Public Use
  Company Number: FR-PFIZER INC-2017183138

PATIENT
  Age: 26 Year
  Sex: Male

DRUGS (4)
  1. OXAZEPAM. [Suspect]
     Active Substance: OXAZEPAM
     Indication: ANTIDEPRESSANT THERAPY
     Dosage: UNK, DAILY (50 TO 150 MG)
  2. METHYLENEDIOXYMETHAMPHETAMINE [Suspect]
     Active Substance: MIDOMAFETAMINE
     Indication: ANTIDEPRESSANT THERAPY
     Dosage: 1 G, UNK
  3. METHADONE HYDROCHLORIDE. [Suspect]
     Active Substance: METHADONE HYDROCHLORIDE
     Indication: ANTIDEPRESSANT THERAPY
     Dosage: 80 MG, UNK
     Route: 048
  4. VENLAFAXINE HCL [Suspect]
     Active Substance: VENLAFAXINE HYDROCHLORIDE
     Dosage: 37.5 MG, UNK

REACTIONS (5)
  - Hypertonia [Unknown]
  - Tendon rupture [Unknown]
  - Coma [Unknown]
  - Eye movement disorder [Unknown]
  - Poisoning [Unknown]
